FAERS Safety Report 5704170-4 (Version None)
Quarter: 2008Q2

REPORT INFORMATION
  Report Type: 
  Country: None (occurrence: None)
  Receive Date: 20080414
  Receipt Date: 20080402
  Transmission Date: 20081010
  Serious: Yes (Other)
  Sender: FDA-Public Use
  Company Number: US-PFIZER INC-2008029539

PATIENT
  Age: 67 Year
  Sex: Female
  Weight: 91 kg

DRUGS (4)
  1. DEPO-MEDROL [Suspect]
     Indication: PAIN
     Route: 050
  2. TOPROL-XL [Concomitant]
  3. NORVASC [Concomitant]
  4. ZESTRIL [Concomitant]

REACTIONS (3)
  - INCORRECT ROUTE OF DRUG ADMINISTRATION [None]
  - MOBILITY DECREASED [None]
  - PAIN [None]
